FAERS Safety Report 11567426 (Version 1)
Quarter: 2015Q3

REPORT INFORMATION
  Report Type: Spontaneous
  Country: US (occurrence: None)
  Receive Date: 20150928
  Receipt Date: 20150928
  Transmission Date: 20151125
  Serious: No
  Sender: FDA-Public Use
  Company Number: None

PATIENT
  Age: 63 Year
  Sex: Male

DRUGS (1)
  1. XTANDI [Suspect]
     Active Substance: ENZALUTAMIDE
     Dates: start: 20150603

REACTIONS (4)
  - Diarrhoea [None]
  - Fatigue [None]
  - Hot flush [None]
  - Breast tenderness [None]

NARRATIVE: CASE EVENT DATE: 20150610
